FAERS Safety Report 18959355 (Version 1)
Quarter: 2021Q1

REPORT INFORMATION
  Report Type: Spontaneous
  Country: NL (occurrence: FR)
  Receive Date: 20210302
  Receipt Date: 20210302
  Transmission Date: 20210420
  Serious: Yes (Hospitalization)
  Sender: FDA-Public Use
  Company Number: FR-FRESENIUS KABI-FK202101968

PATIENT
  Age: 72 Year
  Sex: Male
  Weight: 69 kg

DRUGS (13)
  1. METHYLPREDNISOLONE HEMISUCCINATE [Concomitant]
     Active Substance: METHYLPREDNISOLONE HEMISUCCINATE
     Indication: ADENOCARCINOMA
     Dosage: SEE COMMENT?SOLUMEDROL
     Route: 048
     Dates: start: 20201201, end: 20201230
  2. BISOPROLOL FUMARATE. [Concomitant]
     Active Substance: BISOPROLOL FUMARATE
     Indication: PRODUCT USED FOR UNKNOWN INDICATION
     Dosage: SEE COMMENT
     Route: 048
  3. ONDANSETRON HYDROCHLORIDE. [Suspect]
     Active Substance: ONDANSETRON HYDROCHLORIDE
     Indication: ADENOCARCINOMA
     Dosage: ZOPHREN 8 MG, COATED TABLET?ONDANSETRON HYDROCHLORIDE DIHYDRATE
     Route: 048
     Dates: start: 20201201, end: 20201230
  4. SPIRONOLACTONE. [Concomitant]
     Active Substance: SPIRONOLACTONE
     Indication: PRODUCT USED FOR UNKNOWN INDICATION
     Dosage: SEE COMMENT
     Route: 048
  5. PEMETREXED DISODIUM [Suspect]
     Active Substance: PEMETREXED DISODIUM
     Indication: ADENOCARCINOMA
     Dosage: SEE COMMENT
     Route: 042
     Dates: start: 20201201, end: 20201230
  6. PEMBROLIZUMAB. [Suspect]
     Active Substance: PEMBROLIZUMAB
     Indication: ADENOCARCINOMA
     Dosage: SEE COMMENT?PEMBROLIZUMAB (MAMMAL / HAMSTER / CHO CELLS)/ PEMBROLIZUMAB
     Route: 042
     Dates: start: 20201201, end: 20201230
  7. CARBOPLATIN (MANUFACTURER UNKNOWN) [Suspect]
     Active Substance: CARBOPLATIN
     Indication: ADENOCARCINOMA
     Dosage: SEE COMMENT
     Route: 042
     Dates: start: 20201201, end: 20201201
  8. ALLOPURINOL. [Concomitant]
     Active Substance: ALLOPURINOL
     Indication: PRODUCT USED FOR UNKNOWN INDICATION
     Dosage: SEE COMMENT
     Route: 065
  9. ROSUVASTATIN. [Concomitant]
     Active Substance: ROSUVASTATIN
     Indication: PRODUCT USED FOR UNKNOWN INDICATION
     Dosage: SEE COMMENT
     Route: 048
  10. FUROSEMIDE. [Concomitant]
     Active Substance: FUROSEMIDE
     Indication: PRODUCT USED FOR UNKNOWN INDICATION
     Dosage: SEE COMMENTS
     Route: 048
  11. FOLIC ACID. [Concomitant]
     Active Substance: FOLIC ACID
     Indication: ADENOCARCINOMA
     Dosage: SEE COMMENT
     Route: 048
     Dates: start: 20201020
  12. ENALAPRIL MALEATE. [Concomitant]
     Active Substance: ENALAPRIL MALEATE
     Indication: PRODUCT USED FOR UNKNOWN INDICATION
     Route: 048
  13. CLOPIDOGREL BISULFATE. [Concomitant]
     Active Substance: CLOPIDOGREL BISULFATE
     Indication: PRODUCT USED FOR UNKNOWN INDICATION
     Dosage: CLOPIDOGREL (HYDROGEN SULPHATE)?PLAVIX 75 MG, COATED TABLET
     Route: 048

REACTIONS (1)
  - Toxic epidermal necrolysis [Recovering/Resolving]

NARRATIVE: CASE EVENT DATE: 20201203
